FAERS Safety Report 6667372-9 (Version None)
Quarter: 2010Q2

REPORT INFORMATION
  Report Type: 
  Country: None (occurrence: None)
  Receive Date: 20100405
  Receipt Date: 20100324
  Transmission Date: 20101027
  Serious: Yes (Hospitalization, Other)
  Sender: FDA-Public Use
  Company Number: PHEH2008US02651

PATIENT
  Sex: Female
  Weight: 66 kg

DRUGS (45)
  1. ZOMETA [Suspect]
     Dosage: 4 MG, QW3
     Dates: start: 20010101
  2. FOSAMAX [Concomitant]
  3. PROZAC [Concomitant]
  4. LEVOXYL [Concomitant]
  5. AROMASIN [Concomitant]
     Dosage: 25 MG, QD
  6. ZOLOFT [Concomitant]
     Dosage: 50 MG, QD
  7. SYNTHROID [Concomitant]
  8. VITAMIN E [Concomitant]
  9. MULTI-VITAMINS [Concomitant]
  10. AMBIEN [Concomitant]
  11. MS CONTIN [Concomitant]
  12. LEXAPRO [Concomitant]
  13. VANCOMYCIN [Concomitant]
     Dosage: UNK
  14. FLAGYL [Concomitant]
     Dosage: UNK
  15. ABRAXANE [Concomitant]
     Dosage: UNK
  16. AVASTIN [Concomitant]
     Dosage: UNK
  17. GEMZAR [Concomitant]
     Dosage: 1.2G QD
  18. ALBUTEROL [Concomitant]
     Dosage: UNK
  19. PROTONIX [Concomitant]
     Dosage: UNK
  20. BENADRYL ^ACHE^ [Concomitant]
     Dosage: 15MG
  21. NYSTATIN [Concomitant]
     Dosage: UNK
  22. ROCEPHIN [Concomitant]
     Dosage: 2G
  23. LASIX [Concomitant]
     Dosage: 40MG X1
     Route: 040
  24. DIFLUCAN DERM [Concomitant]
     Dosage: 200MG
  25. CELEBREX [Concomitant]
     Dosage: 200MG
  26. ATIVAN [Concomitant]
     Dosage: 1MG
     Route: 040
  27. XANAX [Concomitant]
     Dosage: 2 TABS QHS
     Route: 048
  28. NEUPOGEN [Concomitant]
  29. PROCRIT                            /00909301/ [Concomitant]
  30. DOXIL [Concomitant]
  31. PAXIL [Concomitant]
  32. ELAVIL [Concomitant]
  33. LYRICA [Concomitant]
  34. DECADRON [Concomitant]
  35. CIPRO [Concomitant]
  36. PERCODAN-DEMI [Concomitant]
  37. BIAXIN [Concomitant]
  38. SCOPOLAMINE [Concomitant]
  39. TEQUIN [Concomitant]
  40. KEFLEX [Concomitant]
  41. VERSED [Concomitant]
  42. FENTANYL [Concomitant]
  43. CHEMOTHERAPEUTICS,OTHER [Concomitant]
     Dosage: UNK
  44. RADIATION [Concomitant]
     Dosage: UNK
     Dates: start: 20040101
  45. PEN-VEE K [Concomitant]

REACTIONS (71)
  - ABDOMINAL PAIN [None]
  - ABDOMINAL SEPSIS [None]
  - AGRANULOCYTOSIS [None]
  - ANAEMIA [None]
  - ANHEDONIA [None]
  - ANXIETY [None]
  - ARTHRITIS [None]
  - ARTIFICIAL CROWN PROCEDURE [None]
  - ASTHENIA [None]
  - BONE DISORDER [None]
  - BONE GRAFT [None]
  - BREATH ODOUR [None]
  - CACHEXIA [None]
  - CELLULITIS [None]
  - CENTRAL VENOUS CATHETERISATION [None]
  - CHEST PAIN [None]
  - CHRONIC SINUSITIS [None]
  - CLOSTRIDIUM DIFFICILE COLITIS [None]
  - DEHYDRATION [None]
  - DENTAL CARIES [None]
  - DEPRESSION [None]
  - DIARRHOEA HAEMORRHAGIC [None]
  - DISABILITY [None]
  - DYSGEUSIA [None]
  - DYSPHAGIA [None]
  - DYSPNOEA [None]
  - EATING DISORDER [None]
  - ENDODONTIC PROCEDURE [None]
  - EYE IRRITATION [None]
  - FATIGUE [None]
  - FISTULA [None]
  - FUNGAL INFECTION [None]
  - GASTRITIS [None]
  - GASTROSTOMY TUBE INSERTION [None]
  - GENERAL PHYSICAL HEALTH DETERIORATION [None]
  - HAEMATOMA [None]
  - HEADACHE [None]
  - HERPES SIMPLEX [None]
  - IMPAIRED HEALING [None]
  - JAW FRACTURE [None]
  - JAW OPERATION [None]
  - MACROPHAGES INCREASED [None]
  - METASTASES TO BONE [None]
  - METASTASES TO LUNG [None]
  - METASTASES TO SKIN [None]
  - NEUROPATHY PERIPHERAL [None]
  - NEUTROPENIA [None]
  - OESOPHAGITIS [None]
  - ORAL CANDIDIASIS [None]
  - ORAL PAIN [None]
  - OSTEOMYELITIS [None]
  - OSTEONECROSIS [None]
  - PAIN [None]
  - PAIN IN JAW [None]
  - PANCYTOPENIA [None]
  - PERIODONTITIS [None]
  - PLEURAL EFFUSION [None]
  - PNEUMONIA [None]
  - PNEUMONIA ASPIRATION [None]
  - PSEUDOMEMBRANOUS COLITIS [None]
  - PURULENT DISCHARGE [None]
  - PYREXIA [None]
  - SINUS OPERATION [None]
  - SKIN INFECTION [None]
  - SPINAL OSTEOARTHRITIS [None]
  - STOMATITIS [None]
  - SWELLING [None]
  - TACHYCARDIA [None]
  - TOOTH EXTRACTION [None]
  - WEIGHT DECREASED [None]
  - WOUND INFECTION STAPHYLOCOCCAL [None]
